FAERS Safety Report 15634335 (Version 2)
Quarter: 2018Q4

REPORT INFORMATION
  Report Type: Spontaneous
  Country: US (occurrence: US)
  Receive Date: 20181119
  Receipt Date: 20181130
  Transmission Date: 20190205
  Serious: Yes (Other)
  Sender: FDA-Public Use
  Company Number: PHEH2018US048793

PATIENT
  Sex: Female

DRUGS (3)
  1. LOSARTAN SANDOZ [Suspect]
     Active Substance: LOSARTAN
     Indication: PRODUCT USED FOR UNKNOWN INDICATION
     Dosage: UNK
     Route: 065
  2. LOSARTAN SANDOZ [Suspect]
     Active Substance: LOSARTAN
     Dosage: UNK
     Route: 065
     Dates: start: 20181031, end: 20181031
  3. PEPCID [Suspect]
     Active Substance: FAMOTIDINE
     Indication: PRODUCT USED FOR UNKNOWN INDICATION
     Dosage: UNK
     Route: 065

REACTIONS (4)
  - Arthralgia [Unknown]
  - Triple negative breast cancer [Unknown]
  - Product quality issue [Unknown]
  - Dyspnoea [Unknown]
